FAERS Safety Report 18778374 (Version 1)
Quarter: 2021Q1

REPORT INFORMATION
  Report Type: Spontaneous
  Country: US (occurrence: US)
  Receive Date: 20210123
  Receipt Date: 20210123
  Transmission Date: 20210419
  Serious: Yes (Hospitalization, Other)
  Sender: FDA-Public Use
  Company Number: US-SA-2021SA015315

PATIENT
  Age: 75 Year
  Sex: Female
  Weight: 84.8 kg

DRUGS (3)
  1. AMLODIPINE [Concomitant]
     Active Substance: AMLODIPINE BESYLATE
  2. MACITENTAN [Suspect]
     Active Substance: MACITENTAN
     Indication: PULMONARY ARTERIAL HYPERTENSION
     Dosage: 10 MG, QD
     Route: 048
  3. PLAVIX [Suspect]
     Active Substance: CLOPIDOGREL BISULFATE
     Indication: PRODUCT USED FOR UNKNOWN INDICATION
     Dosage: UNK
     Route: 065

REACTIONS (10)
  - Poor peripheral circulation [Unknown]
  - Red blood cell count decreased [Unknown]
  - Swelling [Unknown]
  - Contusion [Not Recovered/Not Resolved]
  - Muscular weakness [Unknown]
  - Pruritus [Not Recovered/Not Resolved]
  - Platelet count decreased [Unknown]
  - Dyspnoea [Unknown]
  - Vessel puncture site haematoma [Recovered/Resolved]
  - Peripheral swelling [Unknown]

NARRATIVE: CASE EVENT DATE: 2020
